FAERS Safety Report 10047475 (Version 1)
Quarter: 2014Q1

REPORT INFORMATION
  Report Type: Spontaneous
  Country: MX (occurrence: None)
  Receive Date: 20140327
  Receipt Date: 20140327
  Transmission Date: 20141002
  Serious: Yes (Other)
  Sender: FDA-Public Use
  Company Number: 2014P1002522

PATIENT
  Age: 22 Year
  Sex: Male

DRUGS (3)
  1. CLINDAMYCIN [Suspect]
     Indication: TONSILLITIS
  2. AMBROXOL [Concomitant]
  3. CLENBUTEROL [Suspect]

REACTIONS (4)
  - Catheter site phlebitis [None]
  - Idiosyncratic drug reaction [None]
  - Pancytopenia [None]
  - Bone marrow reticulin fibrosis [None]
